FAERS Safety Report 7063501-6 (Version None)
Quarter: 2010Q4

REPORT INFORMATION
  Report Type: 
  Country: None (occurrence: None)
  Receive Date: 20101026
  Receipt Date: 20100322
  Transmission Date: 20110411
  Serious: No
  Sender: FDA-Public Use
  Company Number: US-ABBOTT-10P-163-0634288-00

PATIENT
  Sex: Female
  Weight: 60.836 kg

DRUGS (4)
  1. LUPRON DEPOT [Suspect]
     Indication: ENDOMETRIOSIS
     Dates: start: 20100215
  2. AGESTYN [Suspect]
     Indication: HORMONE REPLACEMENT THERAPY
     Dates: start: 20100201, end: 20100222
  3. AGESTYN [Suspect]
     Indication: HOT FLUSH
  4. AGESTYN [Suspect]
     Indication: PROPHYLAXIS

REACTIONS (18)
  - ABDOMINAL DISTENSION [None]
  - ABDOMINAL PAIN [None]
  - ABDOMINAL PAIN LOWER [None]
  - ABDOMINAL PAIN UPPER [None]
  - ANXIETY [None]
  - ARTHRALGIA [None]
  - BLOOD OESTROGEN INCREASED [None]
  - CYST RUPTURE [None]
  - DYSPNOEA [None]
  - ENDOMETRIAL DISORDER [None]
  - EXERCISE TOLERANCE DECREASED [None]
  - HEADACHE [None]
  - HOT FLUSH [None]
  - INSOMNIA [None]
  - LOSS OF CONSCIOUSNESS [None]
  - METRORRHAGIA [None]
  - MUSCLE SPASMS [None]
  - TENDONITIS [None]
